FAERS Safety Report 5820401-4 (Version None)
Quarter: 2008Q3

REPORT INFORMATION
  Report Type: 
  Country: None (occurrence: None)
  Receive Date: 20080724
  Receipt Date: 20070628
  Transmission Date: 20090109
  Serious: No
  Sender: FDA-Public Use
  Company Number: A0660701A

PATIENT
  Age: 43 Year
  Sex: Female

DRUGS (8)
  1. AVANDIA [Suspect]
     Dosage: 4MG TWICE PER DAY
     Route: 048
     Dates: start: 20000101, end: 20070501
  2. AVANDAMET [Suspect]
  3. METFORMIN [Suspect]
  4. NEXIUM [Concomitant]
  5. SINGULAIR [Concomitant]
  6. ZYRTEC [Concomitant]
  7. LISINOPRIL [Concomitant]
  8. JANUVIA [Concomitant]

REACTIONS (2)
  - HYPERTENSION [None]
  - MUSCLE SPASMS [None]
